FAERS Safety Report 11549267 (Version 1)
Quarter: 2015Q3

REPORT INFORMATION
  Report Type: Spontaneous
  Country: US (occurrence: US)
  Receive Date: 20150924
  Receipt Date: 20150924
  Transmission Date: 20151125
  Serious: Yes (Other)
  Sender: FDA-Public Use
  Company Number: US-PRINSTON PHARMACEUTICAL INC.-2015PRN00073

PATIENT
  Age: 24 Year
  Sex: Male

DRUGS (18)
  1. ERTAPENEM [Concomitant]
     Active Substance: ERTAPENEM
  2. ENOXAPARIN [Concomitant]
     Active Substance: ENOXAPARIN
  3. CLONIDINE. [Concomitant]
     Active Substance: CLONIDINE
  4. METFORMIN [Concomitant]
     Active Substance: METFORMIN HYDROCHLORIDE
  5. LEVETIRACETAM. [Suspect]
     Active Substance: LEVETIRACETAM
     Indication: SEIZURE
     Dosage: 2000 MG, ONCE
     Route: 065
  6. LUBIPROSTONE [Concomitant]
     Active Substance: LUBIPROSTONE
  7. DOXAZOSIN [Concomitant]
     Active Substance: DOXAZOSIN\DOXAZOSIN MESYLATE
  8. LEVETIRACETAM. [Suspect]
     Active Substance: LEVETIRACETAM
     Dosage: 1000 MG, 2X/DAY
     Route: 065
  9. CEFTRIAXONE. [Concomitant]
     Active Substance: CEFTRIAXONE
  10. ACYCLOVIR. [Concomitant]
     Active Substance: ACYCLOVIR
  11. METHENAMINE [Concomitant]
     Active Substance: METHENAMINE
  12. GENTAMICIN. [Concomitant]
     Active Substance: GENTAMICIN
  13. FLUCONAZOLE. [Concomitant]
     Active Substance: FLUCONAZOLE
  14. OMEPRAZOLE. [Concomitant]
     Active Substance: OMEPRAZOLE
  15. VENLAFAXINE [Concomitant]
     Active Substance: VENLAFAXINE HYDROCHLORIDE
  16. DIAZEPAM. [Concomitant]
     Active Substance: DIAZEPAM
  17. VANCOMYCIN [Concomitant]
     Active Substance: VANCOMYCIN
  18. BACLOFEN. [Concomitant]
     Active Substance: BACLOFEN

REACTIONS (2)
  - Eosinophilia [Recovered/Resolved]
  - Pyrexia [Recovered/Resolved]
